FAERS Safety Report 21673436 (Version 2)
Quarter: 2022Q4

REPORT INFORMATION
  Report Type: Report from Study
  Country: DE (occurrence: DE)
  Receive Date: 20221202
  Receipt Date: 20221222
  Transmission Date: 20230113
  Serious: Yes (Hospitalization)
  Sender: FDA-Public Use
  Company Number: DE-ABBVIE-4220527

PATIENT
  Sex: Male

DRUGS (6)
  1. CARBIDOPA\LEVODOPA [Suspect]
     Active Substance: CARBIDOPA\LEVODOPA
     Indication: Parkinson^s disease
     Dosage: MD: 9.0ML; CRD: 2.8ML/H; DN: 3.8ML; ED: 2.0ML
     Route: 050
     Dates: start: 20210701
  2. CARBIDOPA\LEVODOPA [Suspect]
     Active Substance: CARBIDOPA\LEVODOPA
  3. BENSERAZIDE HYDROCHLORIDE\LEVODOPA [Concomitant]
     Active Substance: BENSERAZIDE HYDROCHLORIDE\LEVODOPA
     Indication: Product used for unknown indication
  4. BENSERAZIDE HYDROCHLORIDE\LEVODOPA [Concomitant]
     Active Substance: BENSERAZIDE HYDROCHLORIDE\LEVODOPA
     Indication: Product used for unknown indication
  5. AMLODIPINE BESYLATE [Concomitant]
     Active Substance: AMLODIPINE BESYLATE
     Indication: Product used for unknown indication
  6. METAMIZOL [Concomitant]
     Active Substance: METAMIZOLE SODIUM
     Indication: Product used for unknown indication

REACTIONS (5)
  - General physical health deterioration [Not Recovered/Not Resolved]
  - Device placement issue [Not Recovered/Not Resolved]
  - Therapeutic product effect incomplete [Not Recovered/Not Resolved]
  - Mobility decreased [Not Recovered/Not Resolved]
  - On and off phenomenon [Not Recovered/Not Resolved]
